FAERS Safety Report 14913407 (Version 2)
Quarter: 2018Q2

REPORT INFORMATION
  Report Type: Report from Study
  Country: US (occurrence: US)
  Receive Date: 20180518
  Receipt Date: 20180607
  Transmission Date: 20180711
  Serious: Yes (Other)
  Sender: FDA-Public Use
  Company Number: US-JAZZ-2018-US-006338

PATIENT
  Age: 47 Year
  Sex: Female

DRUGS (50)
  1. XYREM [Suspect]
     Active Substance: SODIUM OXYBATE
     Dosage: 3.75 G, BID
     Route: 048
     Dates: start: 201803
  2. SUDAFED 24 HOUR [Suspect]
     Active Substance: PSEUDOEPHEDRINE HYDROCHLORIDE
     Indication: PRODUCT USED FOR UNKNOWN INDICATION
  3. ALEVE [Concomitant]
     Active Substance: NAPROXEN SODIUM
  4. CYMBALTA [Concomitant]
     Active Substance: DULOXETINE HYDROCHLORIDE
  5. CYCLOBENZAPRINE HYDROCHLORIDE. [Concomitant]
     Active Substance: CYCLOBENZAPRINE HYDROCHLORIDE
  6. TYLENOL EXTRA STRENGTH [Concomitant]
     Active Substance: ACETAMINOPHEN
  7. VITAMIN B COMPLEX [Concomitant]
     Active Substance: CYANOCOBALAMIN\DEXPANTHENOL\NIACINAMIDE\PYRIDOXINE HYDROCHLORIDE\RIBOFLAVIN 5^-PHOSPHATE SODIUM\THIAMINE HYDROCHLORIDE\VITAMIN B COMPLEX
  8. TESTOSTERONE. [Concomitant]
     Active Substance: TESTOSTERONE
  9. PHYTOMENADIONE [Concomitant]
     Active Substance: PHYTONADIONE
  10. CYCLOBENZAPRINE. [Concomitant]
     Active Substance: CYCLOBENZAPRINE
  11. CYTOMEL [Concomitant]
     Active Substance: LIOTHYRONINE SODIUM
  12. ACETAMINOPHEN W/HYDROCODONE [Concomitant]
     Active Substance: ACETAMINOPHEN\HYDROCODONE
  13. ARMOUR THYROID [Concomitant]
     Active Substance: THYROID, PORCINE
  14. VITAMIN D3 [Concomitant]
     Active Substance: CHOLECALCIFEROL
  15. RITALIN [Concomitant]
     Active Substance: METHYLPHENIDATE HYDROCHLORIDE
  16. ADIPEX-P [Concomitant]
     Active Substance: PHENTERMINE HYDROCHLORIDE
  17. ALPRAZOLAM. [Concomitant]
     Active Substance: ALPRAZOLAM
  18. FAMOTIDINE. [Concomitant]
     Active Substance: FAMOTIDINE
  19. ROPINIROLE HCL [Concomitant]
     Active Substance: ROPINIROLE HYDROCHLORIDE
  20. DILAUDID [Concomitant]
     Active Substance: HYDROMORPHONE HYDROCHLORIDE
  21. CLONAZEPAM. [Concomitant]
     Active Substance: CLONAZEPAM
  22. FISH OIL [Concomitant]
     Active Substance: FISH OIL
  23. ERGOCALCIFEROL. [Concomitant]
     Active Substance: ERGOCALCIFEROL
  24. LEVOTHYROXINE. [Concomitant]
     Active Substance: LEVOTHYROXINE
  25. NAPROXEN SODIUM. [Concomitant]
     Active Substance: NAPROXEN SODIUM
  26. PEPCID COMPLETE [Concomitant]
     Active Substance: CALCIUM CARBONATE\FAMOTIDINE\MAGNESIUM HYDROXIDE
  27. RESTASIS [Concomitant]
     Active Substance: CYCLOSPORINE
  28. XYREM [Suspect]
     Active Substance: SODIUM OXYBATE
     Indication: NARCOLEPSY
     Dosage: 2.25 G, BID
     Route: 048
     Dates: start: 201601, end: 201703
  29. CEFALEXIN [Concomitant]
     Active Substance: CEPHALEXIN
  30. XANAX [Concomitant]
     Active Substance: ALPRAZOLAM
  31. METOCLOPRAMIDE. [Concomitant]
     Active Substance: METOCLOPRAMIDE
  32. ADDERALL [Concomitant]
     Active Substance: AMPHETAMINE ASPARTATE\AMPHETAMINE SULFATE\DEXTROAMPHETAMINE SACCHARATE\DEXTROAMPHETAMINE SULFATE
  33. METFORMIN HCL [Concomitant]
     Active Substance: METFORMIN HYDROCHLORIDE
  34. POTASSIUM [Concomitant]
     Active Substance: POTASSIUM
  35. VALTREX [Concomitant]
     Active Substance: VALACYCLOVIR HYDROCHLORIDE
  36. LYSINE [Concomitant]
     Active Substance: LYSINE
  37. VICODIN [Concomitant]
     Active Substance: ACETAMINOPHEN\HYDROCODONE BITARTRATE
  38. WELLBUTRIN [Concomitant]
     Active Substance: BUPROPION HYDROCHLORIDE
  39. ANDROGEL [Concomitant]
     Active Substance: TESTOSTERONE
  40. DHEA [Concomitant]
     Active Substance: PRASTERONE
  41. XYREM [Suspect]
     Active Substance: SODIUM OXYBATE
     Indication: CATAPLEXY
     Dosage: 3 G, BID
     Route: 048
     Dates: start: 201801, end: 201803
  42. RETINOL [Concomitant]
     Active Substance: RETINOL
  43. DEXAMETHASONE. [Concomitant]
     Active Substance: DEXAMETHASONE
  44. PROAIR HFA [Concomitant]
     Active Substance: ALBUTEROL SULFATE
  45. SUMATRIPTAN. [Concomitant]
     Active Substance: SUMATRIPTAN
  46. MELATONIN [Concomitant]
     Active Substance: MELATONIN
  47. PROGESTERONE. [Concomitant]
     Active Substance: PROGESTERONE
  48. SPIRONOLACTONE. [Concomitant]
     Active Substance: SPIRONOLACTONE
  49. ONDANSETRON [Concomitant]
     Active Substance: ONDANSETRON
  50. MODAFINIL. [Concomitant]
     Active Substance: MODAFINIL

REACTIONS (4)
  - Delirium [Unknown]
  - Insomnia [Unknown]
  - Vertigo [Not Recovered/Not Resolved]
  - Dizziness [Not Recovered/Not Resolved]

NARRATIVE: CASE EVENT DATE: 20180417
